FAERS Safety Report 6855165-9 (Version None)
Quarter: 2010Q3

REPORT INFORMATION
  Report Type: 
  Country: None (occurrence: None)
  Receive Date: 20100717
  Receipt Date: 20090228
  Transmission Date: 20110219
  Serious: No
  Sender: FDA-Public Use
  Company Number: US-PFIZER INC-2008004600

PATIENT
  Sex: Female
  Weight: 68 kg

DRUGS (3)
  1. CHANTIX [Suspect]
     Indication: SMOKING CESSATION THERAPY
     Dosage: 0.5 MG, 2X/DAY
     Dates: start: 20070101
  2. VYTORIN [Concomitant]
     Dosage: UNK
  3. FEMHRT [Concomitant]
     Dosage: UNK

REACTIONS (5)
  - ARTHRALGIA [None]
  - BACK PAIN [None]
  - INSOMNIA [None]
  - MUSCULOSKELETAL PAIN [None]
  - NAUSEA [None]
